FAERS Safety Report 15037054 (Version 2)
Quarter: 2018Q2

REPORT INFORMATION
  Report Type: Spontaneous
  Country: US (occurrence: US)
  Receive Date: 20180620
  Receipt Date: 20180628
  Transmission Date: 20180711
  Serious: Yes (Other)
  Sender: FDA-Public Use
  Company Number: US-BAYER-2018-112048

PATIENT
  Age: 105 Year
  Sex: Female

DRUGS (1)
  1. COPPERTONE SPORT C SPRAY SPF 15 [Suspect]
     Active Substance: AVOBENZONE\OCTISALATE\OCTOCRYLENE

REACTIONS (5)
  - Cough [None]
  - Choking [None]
  - Exposure via inhalation [None]
  - Product physical issue [None]
  - Accidental exposure to product [None]

NARRATIVE: CASE EVENT DATE: 20180609
